FAERS Safety Report 4594836-4 (Version None)
Quarter: 2005Q1

REPORT INFORMATION
  Report Type: 
  Country: None (occurrence: None)
  Receive Date: 20050224
  Receipt Date: 20040928
  Transmission Date: 20050727
  Serious: Yes (Other)
  Sender: FDA-Public Use
  Company Number: GXKR2004US00719

PATIENT
  Age: 10 Year
  Sex: Male

DRUGS (4)
  1. FLUOXETINE [Suspect]
     Indication: DEPRESSION
     Dosage: 2 MG, QD, ORAL
     Route: 048
  2. FLUVOXAMINE MALEATE [Suspect]
     Indication: ANXIETY
     Dosage: 25 MG
  3. PAROXETINE HCL [Suspect]
     Dosage: 2 MG
  4. RISPERDAL [Concomitant]

REACTIONS (8)
  - ABNORMAL BEHAVIOUR [None]
  - AGITATION [None]
  - ANXIETY [None]
  - CHEILITIS [None]
  - DYSKINESIA [None]
  - MEDICATION ERROR [None]
  - RESPIRATORY SIGHS [None]
  - TARDIVE DYSKINESIA [None]
